FAERS Safety Report 18527505 (Version 1)
Quarter: 2020Q4

REPORT INFORMATION
  Report Type: Spontaneous
  Country: DE (occurrence: DE)
  Receive Date: 20201120
  Receipt Date: 20201120
  Transmission Date: 20210114
  Serious: Yes (Life-Threatening, Hospitalization)
  Sender: FDA-Public Use
  Company Number: NVSC2020DE308094

PATIENT
  Age: 50 Year
  Sex: Female
  Weight: 54 kg

DRUGS (10)
  1. ADEK [Concomitant]
     Indication: PRODUCT USED FOR UNKNOWN INDICATION
     Dosage: 2 DF, QD (DAILY DOSE: 2 DF DOSAGE FORM EVERY DAYS 2 SEPARATED DOSES (DAUERMEDIKATION; INDIKATION: RE
     Route: 048
  2. LEVEMIR [Concomitant]
     Active Substance: INSULIN DETEMIR
     Indication: DIABETES MELLITUS
     Dosage: 6 IU, QD DAILY (DOSE: 6 IU INTERNATIONAL UNIT(S) EVERY DAYS 2 SEPARATED DOSES (DAUERMEDIKATION)
     Route: 058
  3. TOBRAMYCIN. [Suspect]
     Active Substance: TOBRAMYCIN
     Indication: BRONCHITIS
     Dosage: 380 MG
     Route: 042
     Dates: start: 20200827, end: 20200904
  4. KREON [Concomitant]
     Active Substance: PANCRELIPASE
     Indication: PANCREATIC FAILURE
     Dosage: 25000 IU (DAUERMEDIKATION)
     Route: 048
  5. DEKRISTOL [Concomitant]
     Active Substance: CHOLECALCIFEROL
     Indication: OSTEOPOROSIS
     Dosage: 50000 IU, QW (DAILY DOSE: 50000 IU INTERNATIONAL UNIT(S) EVERY WEEKS 2 SEPARATED DOSES )
     Route: 048
  6. AZITHROMYCIN ANHYDROUS. [Concomitant]
     Active Substance: AZITHROMYCIN ANHYDROUS
     Indication: BRONCHITIS
     Dosage: 1000 MG, QW (DAILY DOSE: 1000 MG MILLGRAM(S) EVERY WEEKS (DAUERMEDIKATION)
     Route: 048
  7. CEFEPIM [Suspect]
     Active Substance: CEFEPIME HYDROCHLORIDE
     Indication: BRONCHITIS
     Dosage: 4 G, QD (DAILY DOSE: 4 G GRAM(S) EVERY DAYS 2 SEPARATED DOSES)
     Route: 042
     Dates: start: 20200827, end: 20200904
  8. IBUPROFEN. [Concomitant]
     Active Substance: IBUPROFEN
     Indication: MYALGIA
     Dosage: UNK (SELBSTMEDIKATION)
     Route: 065
  9. ACC [Concomitant]
     Active Substance: ACETYLCYSTEINE
     Indication: BRONCHITIS
     Dosage: 1200 MG, QD (DAILY DOSE: 1200 MG MILLGRAM(S) EVERY DAYS 2 SEPARATED DOSES)
     Route: 048
  10. METHYLPREDNISOLON [Concomitant]
     Active Substance: METHYLPREDNISOLONE
     Indication: BRONCHITIS
     Dosage: 2 MG (DAUERMEDIKATION)
     Route: 048

REACTIONS (1)
  - Acute kidney injury [Recovering/Resolving]

NARRATIVE: CASE EVENT DATE: 20200907
